FAERS Safety Report 21012060 (Version 3)
Quarter: 2022Q4

REPORT INFORMATION
  Report Type: Report from Study
  Country: GB (occurrence: GB)
  Receive Date: 20220627
  Receipt Date: 20221122
  Transmission Date: 20230113
  Serious: Yes (Hospitalization, Other)
  Sender: FDA-Public Use
  Company Number: GB-GILEAD-2022-0587240

PATIENT
  Age: 75 Year
  Sex: Male

DRUGS (9)
  1. SACITUZUMAB GOVITECAN [Suspect]
     Active Substance: SACITUZUMAB GOVITECAN
     Indication: Bladder transitional cell carcinoma
     Dosage: 570 MG
     Route: 042
     Dates: start: 20220128
  2. ATEZOLIZUMAB [Suspect]
     Active Substance: ATEZOLIZUMAB
     Indication: Bladder transitional cell carcinoma
     Dosage: 1200 MG, ONCE IN 3 WEEKS
     Route: 041
     Dates: start: 20210325
  3. ACETAMINOPHEN [Concomitant]
     Active Substance: ACETAMINOPHEN
  4. TAMSULOSIN [Concomitant]
     Active Substance: TAMSULOSIN
     Dosage: UNK
     Dates: start: 20200101
  5. METOCLOPRAMIDE [Concomitant]
     Active Substance: METOCLOPRAMIDE
     Indication: Nausea
     Dosage: UNK
     Dates: start: 20210513
  6. LANSOPRAZOLE [Concomitant]
     Active Substance: LANSOPRAZOLE
     Dosage: UNK
     Dates: start: 20200201
  7. WHOLE BLOOD [Concomitant]
     Active Substance: WHOLE BLOOD
     Dosage: 2 UNITS
     Dates: start: 20210406
  8. MORPHINE SULFATE [Concomitant]
     Active Substance: MORPHINE SULFATE
     Dosage: 10 MG, BID
     Route: 048
     Dates: start: 20210410
  9. DIPROBASE [CETOMACROGOL;CETOSTEARYL ALCOHOL;PARAFFIN, LIQUID;WHITE SOF [Concomitant]
     Indication: Pruritus

REACTIONS (1)
  - Rectal haemorrhage [Recovered/Resolved]

NARRATIVE: CASE EVENT DATE: 20210406
